FAERS Safety Report 12719665 (Version 1)
Quarter: 2016Q3

REPORT INFORMATION
  Report Type: Spontaneous
  Country: US (occurrence: US)
  Receive Date: 20160907
  Receipt Date: 20160907
  Transmission Date: 20161109
  Serious: No
  Sender: FDA-Public Use
  Company Number: US-JNJFOC-20160623624

PATIENT
  Age: 65 Year
  Sex: Female

DRUGS (1)
  1. SIMPONI ARIA [Suspect]
     Active Substance: GOLIMUMAB
     Indication: RHEUMATOID ARTHRITIS
     Dosage: 0, 4 AND EVERY 8 WEEKS AFTER LOADING DOSE
     Route: 042

REACTIONS (2)
  - Fatigue [Unknown]
  - Hypertension [Unknown]
